FAERS Safety Report 19180927 (Version 1)
Quarter: 2021Q2

REPORT INFORMATION
  Report Type: Spontaneous
  Country: FR (occurrence: FR)
  Receive Date: 20210426
  Receipt Date: 20210426
  Transmission Date: 20210717
  Serious: Yes (Hospitalization, Other)
  Sender: FDA-Public Use
  Company Number: FR-SA-2021SA131352

PATIENT
  Age: 56 Year
  Sex: Male

DRUGS (2)
  1. RIFATER [Suspect]
     Active Substance: ISONIAZID\PYRAZINAMIDE\RIFAMPIN
     Indication: TUBERCULOSIS
     Dosage: 6 CP/J
     Route: 048
     Dates: start: 20210201, end: 20210306
  2. DEXAMBUTOL [Suspect]
     Active Substance: ETHAMBUTOL HYDROCHLORIDE
     Indication: TUBERCULOSIS
     Dosage: 2X/J
     Route: 048
     Dates: start: 20210201, end: 20210306

REACTIONS (1)
  - Agranulocytosis [Recovered/Resolved]
